FAERS Safety Report 6399375-6 (Version None)
Quarter: 2009Q4

REPORT INFORMATION
  Report Type: 
  Country: None (occurrence: None)
  Receive Date: 20091014
  Receipt Date: 20071213
  Transmission Date: 20100525
  Serious: Yes (Hospitalization, Other)
  Sender: FDA-Public Use
  Company Number: US-ASTRAZENECA-2007UW19687

PATIENT
  Age: 17424 Day
  Sex: Male
  Weight: 102 kg

DRUGS (42)
  1. SEROQUEL [Suspect]
     Indication: SLEEP DISORDER
     Route: 048
     Dates: start: 20030101, end: 20070120
  2. SEROQUEL [Suspect]
     Indication: DEPRESSION
     Route: 048
     Dates: start: 20030101, end: 20070120
  3. SEROQUEL [Suspect]
     Indication: IRRITABILITY
     Route: 048
     Dates: start: 20030101, end: 20070120
  4. SEROQUEL [Suspect]
     Indication: SCHIZOPHRENIA
     Route: 048
     Dates: start: 20030101, end: 20070120
  5. SEROQUEL [Suspect]
     Indication: INSOMNIA
     Route: 048
     Dates: start: 20030101, end: 20070120
  6. SEROQUEL [Suspect]
     Indication: HALLUCINATION, AUDITORY
     Route: 048
     Dates: start: 20030101, end: 20070120
  7. SEROQUEL [Suspect]
     Indication: AGGRESSION
     Route: 048
     Dates: start: 20030101, end: 20070120
  8. SEROQUEL [Suspect]
     Dosage: 12.5-100 MG
     Route: 048
     Dates: start: 20050715, end: 20051121
  9. SEROQUEL [Suspect]
     Dosage: 12.5-100 MG
     Route: 048
     Dates: start: 20050715, end: 20051121
  10. SEROQUEL [Suspect]
     Dosage: 12.5-100 MG
     Route: 048
     Dates: start: 20050715, end: 20051121
  11. SEROQUEL [Suspect]
     Dosage: 12.5-100 MG
     Route: 048
     Dates: start: 20050715, end: 20051121
  12. SEROQUEL [Suspect]
     Dosage: 12.5-100 MG
     Route: 048
     Dates: start: 20050715, end: 20051121
  13. SEROQUEL [Suspect]
     Dosage: 12.5-100 MG
     Route: 048
     Dates: start: 20050715, end: 20051121
  14. SEROQUEL [Suspect]
     Dosage: 12.5-100 MG
     Route: 048
     Dates: start: 20050715, end: 20051121
  15. SEROQUEL [Suspect]
     Dosage: 25  600 MG
     Route: 048
     Dates: start: 20060315, end: 20070201
  16. SEROQUEL [Suspect]
     Dosage: 25  600 MG
     Route: 048
     Dates: start: 20060315, end: 20070201
  17. SEROQUEL [Suspect]
     Dosage: 25  600 MG
     Route: 048
     Dates: start: 20060315, end: 20070201
  18. SEROQUEL [Suspect]
     Dosage: 25  600 MG
     Route: 048
     Dates: start: 20060315, end: 20070201
  19. SEROQUEL [Suspect]
     Dosage: 25  600 MG
     Route: 048
     Dates: start: 20060315, end: 20070201
  20. SEROQUEL [Suspect]
     Dosage: 25  600 MG
     Route: 048
     Dates: start: 20060315, end: 20070201
  21. SEROQUEL [Suspect]
     Dosage: 25  600 MG
     Route: 048
     Dates: start: 20060315, end: 20070201
  22. SEROQUEL [Suspect]
     Route: 048
     Dates: start: 20070222
  23. SEROQUEL [Suspect]
     Route: 048
     Dates: start: 20070222
  24. SEROQUEL [Suspect]
     Route: 048
     Dates: start: 20070222
  25. SEROQUEL [Suspect]
     Route: 048
     Dates: start: 20070222
  26. SEROQUEL [Suspect]
     Route: 048
     Dates: start: 20070222
  27. SEROQUEL [Suspect]
     Route: 048
     Dates: start: 20070222
  28. SEROQUEL [Suspect]
     Route: 048
     Dates: start: 20070222
  29. HYZAAR [Concomitant]
     Indication: HYPERTENSION
     Dosage: 50/12.5 MG, 20 MG DAILY
     Dates: start: 20060317
  30. NORVASC [Concomitant]
     Indication: HYPERTENSION
     Dates: start: 20060317
  31. LAMICTAL [Concomitant]
     Indication: CONVULSION
     Dosage: 25-600 MG
     Dates: start: 20061027
  32. VYTORIN [Concomitant]
     Indication: HYPERTENSIVE HEART DISEASE
     Dosage: 10/20 MG DAILY
     Dates: start: 20060317
  33. LITHIUM [Concomitant]
     Dates: start: 20061225
  34. AVANDIA [Concomitant]
     Dosage: 4-8 MG
     Dates: start: 20061225
  35. LANTUS [Concomitant]
     Dosage: 10 UNITS DAILY
     Dates: start: 20061225
  36. TRAZODONE [Concomitant]
     Indication: INSOMNIA
     Dosage: 50-100 MG
     Dates: start: 20040618, end: 20051021
  37. LEXAPRO [Concomitant]
     Dosage: 5-20 MG
     Route: 048
     Dates: start: 20040518, end: 20060401
  38. GEODON [Concomitant]
     Dosage: 40-160 MG
     Dates: start: 20051021
  39. PROCARDIA XL [Concomitant]
     Dates: start: 20030205
  40. ATENOLOL [Concomitant]
     Dosage: 50 AT NIGHT
     Dates: start: 20030205
  41. PREVACID [Concomitant]
     Dates: start: 20030205
  42. TEMAZEPAM [Concomitant]
     Dosage: 30-60 MG
     Route: 048
     Dates: start: 20070209

REACTIONS (7)
  - DIABETES MELLITUS [None]
  - DIABETES MELLITUS INADEQUATE CONTROL [None]
  - HYPERGLYCAEMIA [None]
  - NEUROPATHY PERIPHERAL [None]
  - RENAL FAILURE ACUTE [None]
  - TYPE 2 DIABETES MELLITUS [None]
  - WEIGHT INCREASED [None]
